FAERS Safety Report 17936838 (Version 9)
Quarter: 2022Q1

REPORT INFORMATION
  Report Type: Spontaneous
  Country: US (occurrence: US)
  Receive Date: 20200624
  Receipt Date: 20220224
  Transmission Date: 20220423
  Serious: No
  Sender: FDA-Public Use
  Company Number: US-PFIZER INC-2020236851

PATIENT
  Age: 9 Year
  Sex: Male
  Weight: 18.14 kg

DRUGS (2)
  1. GENOTROPIN [Suspect]
     Active Substance: SOMATROPIN
     Indication: Growth hormone deficiency
     Dosage: 0.7 MG, 1X/DAY
     Dates: start: 20200612
  2. GENOTROPIN [Suspect]
     Active Substance: SOMATROPIN
     Indication: Septo-optic dysplasia
     Dosage: 0.8 MG, DAILY
     Dates: start: 20200612

REACTIONS (7)
  - Skin laceration [Unknown]
  - Injury associated with device [Unknown]
  - Device dispensing error [Unknown]
  - Drug dose omission by device [Unknown]
  - Needle issue [Unknown]
  - Device information output issue [Unknown]
  - Device breakage [Unknown]

NARRATIVE: CASE EVENT DATE: 20200101
